FAERS Safety Report 4552109-X (Version None)
Quarter: 2004Q4

REPORT INFORMATION
  Report Type: 
  Country: None (occurrence: None)
  Receive Date: 20041217
  Receipt Date: 20041014
  Transmission Date: 20050328
  Serious: No
  Sender: FDA-Public Use
  Company Number: 2004-BP-10000BP

PATIENT
  Age: 76 Year
  Sex: Male

DRUGS (10)
  1. SPIRIVA [Suspect]
     Indication: CHRONIC OBSTRUCTIVE AIRWAYS DISEASE
     Dosage: ONE/TWO PUFFS/DAY (18 MCG), IN
     Route: 055
     Dates: start: 20040501
  2. SPIRIVA [Suspect]
  3. ADAVAIR (SERETIDE MITE) [Concomitant]
  4. POTASSIUM [Concomitant]
  5. LASIX [Concomitant]
  6. COREG [Concomitant]
  7. LEXAPRO [Concomitant]
  8. SYNTHROID [Concomitant]
  9. ALTACE [Concomitant]
  10. OXYGEN [Concomitant]

REACTIONS (2)
  - AGEUSIA [None]
  - DRUG INEFFECTIVE [None]
